FAERS Safety Report 9924935 (Version 1)
Quarter: 2014Q1

REPORT INFORMATION
  Report Type: Spontaneous
  Country: US (occurrence: None)
  Receive Date: 20140224
  Receipt Date: 20140224
  Transmission Date: 20141002
  Serious: No
  Sender: FDA-Public Use
  Company Number: None

PATIENT
  Age: 53 Year
  Sex: Female
  Weight: 92.4 kg

DRUGS (10)
  1. VANCOMYCIN [Suspect]
     Indication: LUNG INFILTRATION
     Dosage: Q18H
     Route: 042
     Dates: start: 20140215, end: 20140219
  2. VANCOMYCIN [Suspect]
     Indication: PNEUMONIA
     Dosage: Q18H
     Route: 042
     Dates: start: 20140215, end: 20140219
  3. APAP [Concomitant]
  4. ALBUTEROL SULFATE [Concomitant]
  5. ATORVASTATIN [Concomitant]
  6. MUPIROCIN [Concomitant]
  7. OMEPRAZOLE [Concomitant]
  8. TAMIFLU [Concomitant]
  9. PREDNISONE [Concomitant]
  10. TEMAZEPAM [Concomitant]

REACTIONS (1)
  - Rash [None]
